FAERS Safety Report 10205069 (Version 1)
Quarter: 2014Q2

REPORT INFORMATION
  Report Type: Spontaneous
  Country: FR (occurrence: FR)
  Receive Date: 20140529
  Receipt Date: 20140529
  Transmission Date: 20141212
  Serious: Yes (Other)
  Sender: FDA-Public Use
  Company Number: FR-ACTAVIS-2014-10853

PATIENT
  Age: 84 Year
  Sex: Male

DRUGS (8)
  1. PRAMIPEXOLE (UNKNOWN) [Suspect]
     Indication: RESTLESS LEGS SYNDROME
     Dosage: 0.7 MG, UNKNOWN
     Route: 065
  2. MOCLOBEMIDE (UNKNOWN) [Suspect]
     Indication: DEPRESSION
     Dosage: UNK
     Route: 065
  3. GABAPENTIN [Concomitant]
     Indication: RESTLESS LEGS SYNDROME
     Dosage: UNK
     Route: 065
  4. CODEINE [Concomitant]
     Indication: RESTLESS LEGS SYNDROME
     Dosage: UNK
     Route: 065
  5. BROMOCRIPTINE [Concomitant]
     Indication: RESTLESS LEGS SYNDROME
     Dosage: UNK
     Route: 065
  6. FENTANYL [Concomitant]
     Indication: RESTLESS LEGS SYNDROME
     Dosage: UNKNOWN, OVERNIGHT
     Route: 065
  7. FENTANYL [Concomitant]
     Indication: IMPULSE-CONTROL DISORDER
  8. CITALOPRAM [Concomitant]
     Indication: DEPRESSION
     Dosage: UNK
     Route: 065

REACTIONS (5)
  - Withdrawal syndrome [Recovered/Resolved]
  - Major depression [Recovered/Resolved]
  - Impulse-control disorder [Unknown]
  - Restless legs syndrome [Unknown]
  - Condition aggravated [Unknown]
